FAERS Safety Report 7253826-3 (Version None)
Quarter: 2011Q1

REPORT INFORMATION
  Report Type: 
  Country: None (occurrence: None)
  Receive Date: 20110129
  Receipt Date: 20100423
  Transmission Date: 20110831
  Serious: No
  Sender: FDA-Public Use
  Company Number: US-ABBOTT-10P-163-0640710-00

PATIENT
  Sex: Female
  Weight: 68.1 kg

DRUGS (7)
  1. HUMIRA [Suspect]
     Indication: RHEUMATOID ARTHRITIS
     Dates: start: 20090701, end: 20091201
  2. HUMIRA [Suspect]
     Dates: start: 20091201
  3. PREDNISONE [Concomitant]
     Dosage: 5 MG IN MORNING AND 7.5 MG AT NIGHT, WEANING DOWN  WEANING DOWN
  4. URICET [Concomitant]
     Indication: BLOOD CITRIC ACID ABNORMAL
  5. METHOTREXATE [Concomitant]
     Indication: PRODUCT USED FOR UNKNOWN INDICATION
  6. MOTRIN [Concomitant]
     Indication: PRODUCT USED FOR UNKNOWN INDICATION
  7. PREDNISONE [Concomitant]
     Indication: PRODUCT USED FOR UNKNOWN INDICATION

REACTIONS (2)
  - HERPES ZOSTER [None]
  - DRUG INEFFECTIVE [None]
